FAERS Safety Report 7031001-5 (Version None)
Quarter: 2010Q4

REPORT INFORMATION
  Report Type: 
  Country: None (occurrence: None)
  Receive Date: 20101006
  Receipt Date: 20100802
  Transmission Date: 20110411
  Serious: No
  Sender: FDA-Public Use
  Company Number: US-BRISTOL-MYERS SQUIBB COMPANY-15151640

PATIENT
  Age: 31 Year
  Sex: Female
  Weight: 151 kg

DRUGS (3)
  1. KENALOG-40 [Suspect]
     Indication: INTERVERTEBRAL DISC PROTRUSION
     Dosage: ALSO ON 14JUN2010; 1DF-TRIAMCINOLONE ACETONIDE 40 INJECTION
     Dates: start: 20100601
  2. MOTRIN [Concomitant]
  3. TYLENOL [Concomitant]

REACTIONS (4)
  - DIZZINESS [None]
  - MYALGIA [None]
  - NAUSEA [None]
  - PALPITATIONS [None]
